FAERS Safety Report 13434349 (Version 2)
Quarter: 2017Q2

REPORT INFORMATION
  Report Type: Spontaneous
  Country: US (occurrence: US)
  Receive Date: 20170413
  Receipt Date: 20170413
  Transmission Date: 20170830
  Serious: No
  Sender: FDA-Public Use
  Company Number: US-009507513-1704USA005741

PATIENT
  Sex: Female

DRUGS (1)
  1. GANIRELIX ACETATE INJECTION [Suspect]
     Active Substance: GANIRELIX ACETATE
     Dosage: 250 MCG/0.5 ML, ONCE A DAY
     Dates: start: 201704

REACTIONS (3)
  - Injection site pain [Unknown]
  - Product quality issue [Unknown]
  - Injection site haemorrhage [Unknown]
